FAERS Safety Report 6182709-5 (Version None)
Quarter: 2009Q2

REPORT INFORMATION
  Report Type: 
  Country: None (occurrence: None)
  Receive Date: 20090507
  Receipt Date: 20090504
  Transmission Date: 20091009
  Serious: Yes (Hospitalization)
  Sender: FDA-Public Use
  Company Number: D0061331A

PATIENT
  Sex: Male
  Weight: 117 kg

DRUGS (6)
  1. AVODART [Suspect]
     Route: 048
     Dates: start: 20090418, end: 20090418
  2. ENALAPRIL MALEATE [Suspect]
     Route: 048
     Dates: start: 20090418, end: 20090418
  3. MARCUMAR [Suspect]
     Dosage: 3MG SEE DOSAGE TEXT
     Route: 048
     Dates: start: 20090418, end: 20090418
  4. METOPROLOL [Suspect]
     Route: 048
     Dates: start: 20090418, end: 20090418
  5. NOVODIGAL [Suspect]
     Route: 048
     Dates: start: 20090418, end: 20090418
  6. SIMVASTATIN [Suspect]
     Route: 048
     Dates: start: 20090418, end: 20090418

REACTIONS (2)
  - INTENTIONAL OVERDOSE [None]
  - SUICIDE ATTEMPT [None]
